FAERS Safety Report 12722657 (Version 1)
Quarter: 2016Q3

REPORT INFORMATION
  Report Type: Other
  Country: US (occurrence: US)
  Receive Date: 20160907
  Receipt Date: 20160907
  Transmission Date: 20161109
  Serious: No
  Sender: FDA-Public Use
  Company Number: US-COL_21798_2016

PATIENT
  Sex: Female

DRUGS (2)
  1. COLGATE TOTAL ADVANCED WHITENING [Suspect]
     Active Substance: SODIUM FLUORIDE\TRICLOSAN
     Dosage: COVERED HALF THE HEAD OF THE TOOTHBRUSH/ BID/
     Route: 048
     Dates: end: 20160108
  2. COLGATE TOTAL ADVANCED WHITENING [Suspect]
     Active Substance: SODIUM FLUORIDE\TRICLOSAN
     Indication: PRODUCT USED FOR UNKNOWN INDICATION
     Dosage: COVERED HALF THE HEAD OF THE TOOTHBRUSH/ BID/
     Route: 048
     Dates: start: 201512

REACTIONS (6)
  - Tongue ulceration [Recovering/Resolving]
  - Stomatitis [Recovering/Resolving]
  - Oral pain [Recovering/Resolving]
  - Oropharyngeal pain [Recovering/Resolving]
  - Oral discomfort [Recovering/Resolving]
  - Glossodynia [Recovering/Resolving]
